FAERS Safety Report 16584395 (Version 2)
Quarter: 2019Q3

REPORT INFORMATION
  Report Type: Spontaneous
  Country: FR (occurrence: FR)
  Receive Date: 20190717
  Receipt Date: 20190725
  Transmission Date: 20191004
  Serious: Yes (Hospitalization)
  Sender: FDA-Public Use
  Company Number: FR-AMREGENT-20191492

PATIENT
  Age: 37 Year
  Sex: Female

DRUGS (1)
  1. VENOFER [Suspect]
     Active Substance: IRON SUCROSE
     Dosage: 1 DOSAGE FORM
     Route: 042
     Dates: start: 20190519, end: 2019

REACTIONS (1)
  - Thrombophlebitis [None]

NARRATIVE: CASE EVENT DATE: 20190524
